FAERS Safety Report 9524947 (Version 2)
Quarter: 2013Q3

REPORT INFORMATION
  Report Type: Spontaneous
  Country: FR (occurrence: FR)
  Receive Date: 20130916
  Receipt Date: 20130916
  Transmission Date: 20140515
  Serious: Yes (Death, Hospitalization)
  Sender: FDA-Public Use
  Company Number: FR-PFIZER INC-2013221780

PATIENT
  Age: 50 Year
  Sex: Female

DRUGS (7)
  1. ZYVOXID [Suspect]
     Indication: SEPSIS
     Dosage: 600 MG, 2X/DAY
     Route: 048
  2. ZYVOXID [Suspect]
     Indication: ENDOCARDITIS
  3. ZYVOXID [Suspect]
     Indication: ERYSIPELAS
  4. TAZOCILLINE [Concomitant]
     Indication: SEPSIS
  5. TAZOCILLINE [Concomitant]
     Indication: ENDOCARDITIS
  6. TAZOCILLINE [Concomitant]
     Indication: ERYSIPELAS
  7. ALEPSAL [Concomitant]
     Indication: EPILEPSY
     Dosage: 50 MG, 3X/DAY
     Route: 048

REACTIONS (3)
  - Pancytopenia [Fatal]
  - Metabolic acidosis [Fatal]
  - Thrombocytopenia [Unknown]
